FAERS Safety Report 18899924 (Version 6)
Quarter: 2022Q1

REPORT INFORMATION
  Report Type: Report from Study
  Country: US (occurrence: US)
  Receive Date: 20210216
  Receipt Date: 20220126
  Transmission Date: 20220423
  Serious: Yes (Death, Hospitalization, Other)
  Sender: FDA-Public Use
  Company Number: US-TAKEDA-2021TUS009546

PATIENT
  Sex: Female
  Weight: 61 kg

DRUGS (4)
  1. PONATINIB [Suspect]
     Active Substance: PONATINIB
     Indication: Chronic myeloid leukaemia
     Dosage: 45 MILLIGRAM, QD
     Route: 065
  2. PONATINIB [Suspect]
     Active Substance: PONATINIB
     Dosage: 15 MILLIGRAM, QD
     Route: 065
  3. PROGRAF [Concomitant]
     Active Substance: TACROLIMUS
     Indication: Heart transplant
     Dosage: UNK
     Route: 065
  4. INSULIN NOS [Concomitant]
     Active Substance: INSULIN NOS
     Indication: Diabetes mellitus
     Dosage: UNK
     Route: 065

REACTIONS (15)
  - Death [Fatal]
  - Pneumonia [Unknown]
  - Dyspnoea [Unknown]
  - Urinary tract infection [Unknown]
  - Osteonecrosis [Unknown]
  - Memory impairment [Unknown]
  - Abdominal pain upper [Unknown]
  - Pain [Unknown]
  - Insomnia [Unknown]
  - Arthralgia [Unknown]
  - Back pain [Unknown]
  - Pain in extremity [Unknown]
  - Decreased appetite [Unknown]
  - Malaise [Unknown]
  - Myalgia [Unknown]
